FAERS Safety Report 17035564 (Version 1)
Quarter: 2019Q4

REPORT INFORMATION
  Report Type: Spontaneous
  Country: DE (occurrence: DE)
  Receive Date: 20191115
  Receipt Date: 20191115
  Transmission Date: 20200122
  Serious: Yes (Other)
  Sender: FDA-Public Use
  Company Number: DE-009507513-1911DEU004360

PATIENT
  Age: 1 Day
  Sex: Female
  Weight: 2.5 kg

DRUGS (5)
  1. SERTRALINE HYDROCHLORIDE. [Suspect]
     Active Substance: SERTRALINE HYDROCHLORIDE
     Indication: BIPOLAR II DISORDER
     Dosage: 100 MILLIGRAM, QD (0. - 39.2. GESTATIONAL WEEK)
     Route: 064
     Dates: start: 20171201, end: 20180902
  2. MONTELUKAST SODIUM. [Suspect]
     Active Substance: MONTELUKAST SODIUM
     Indication: ASTHMA
     Dosage: 10 MILLIGRAM, QD (0. - 39.2. GESTATIONAL WEEK)
     Route: 064
     Dates: start: 20171201, end: 20180902
  3. FOSTER [Suspect]
     Active Substance: BECLOMETHASONE\FORMOTEROL
     Indication: ASTHMA
     Dosage: 100/ 6 MICROGRAM, QD (0. - 39.2. GESTATIONAL WEEK)
     Route: 064
     Dates: start: 20171201, end: 20180902
  4. PANTOPRAZOLE [Concomitant]
     Active Substance: PANTOPRAZOLE
     Indication: GASTRITIS
     Dosage: 40MILLIGRAM PER DAY/ IF REQUIRED
     Route: 064
  5. VOMEX A [Concomitant]
     Active Substance: DIMENHYDRINATE
     Indication: MORNING SICKNESS
     Dosage: 150 MILLIGRAM PER DAY OR ORALLY (12. - 39.2. GESTATIONAL WEEK)
     Route: 064

REACTIONS (2)
  - Small for dates baby [Recovering/Resolving]
  - Foetal exposure during pregnancy [Unknown]

NARRATIVE: CASE EVENT DATE: 20180902
